FAERS Safety Report 19642605 (Version 2)
Quarter: 2021Q3

REPORT INFORMATION
  Report Type: Spontaneous
  Country: US (occurrence: US)
  Receive Date: 20210730
  Receipt Date: 20210804
  Transmission Date: 20211014
  Serious: Yes (Other)
  Sender: FDA-Public Use
  Company Number: US-PFIZER INC-202100924516

PATIENT
  Age: 83 Year
  Sex: Female

DRUGS (1)
  1. TOVIAZ [Suspect]
     Active Substance: FESOTERODINE FUMARATE
     Dosage: 8 MG
     Dates: start: 202107

REACTIONS (8)
  - Heart rate increased [Unknown]
  - Dry mouth [Unknown]
  - Intentional product misuse [Unknown]
  - Hypertension [Unknown]
  - Renal failure [Unknown]
  - Dehydration [Unknown]
  - Blood creatinine increased [Unknown]
  - Pain [Unknown]

NARRATIVE: CASE EVENT DATE: 202107
